FAERS Safety Report 8233587-1 (Version None)
Quarter: 2012Q1

REPORT INFORMATION
  Report Type: 
  Country: None (occurrence: None)
  Receive Date: 20120326
  Receipt Date: 20120319
  Transmission Date: 20120608
  Serious: Yes (Hospitalization, Other)
  Sender: FDA-Public Use
  Company Number: PHHO2011FR08691

PATIENT
  Sex: Male
  Weight: 147 kg

DRUGS (9)
  1. METHOTREXATE [Suspect]
     Dosage: 18 G, UNK
     Route: 042
     Dates: start: 20100805, end: 20110228
  2. ETOPOSIDE [Suspect]
     Dosage: 100 MG, UNK
     Route: 042
     Dates: start: 20100828, end: 20101004
  3. HALIXOL [Concomitant]
     Dosage: 4.3 G, UNK
     Dates: start: 20100828, end: 20110406
  4. CISPLATIN [Suspect]
     Dosage: UNK
     Dates: start: 20101227, end: 20110428
  5. CALCIUM CARBONATE [Concomitant]
  6. IFOSFAMIDE [Suspect]
     Indication: METASTASES TO BONE
     Dosage: 4 G, UNK
     Route: 042
     Dates: start: 20100828
  7. ZOLEDRONOC ACID [Suspect]
     Indication: METASTASES TO BONE
     Dosage: 2 MG, UNK
     Route: 042
     Dates: start: 20100809
  8. ADRIAMYCIN PFS [Suspect]
     Dosage: UNK
     Dates: start: 20101227, end: 20110428
  9. VITAMIN D [Concomitant]
     Dosage: UNK

REACTIONS (2)
  - ULCER [None]
  - POSTOPERATIVE ADHESION [None]
